FAERS Safety Report 4412211-X (Version None)
Quarter: 2004Q3

REPORT INFORMATION
  Report Type: 
  Country: None (occurrence: None)
  Receive Date: 20040727
  Receipt Date: 20040713
  Transmission Date: 20050211
  Serious: Yes (Hospitalization, Other)
  Sender: FDA-Public Use
  Company Number: 238133

PATIENT
  Age: 2 Day
  Sex: Male
  Weight: 2.7 kg

DRUGS (10)
  1. NOVORAPID PENFILL 3 ML (INSULIN APART) SOLUTION FOR INJECTION, 100U/ML [Suspect]
     Indication: DIABETES MELLITUS INSULIN-DEPENDENT
     Dosage: 40 IU, QD, INTRAUTERINE
     Route: 015
     Dates: start: 20040130
  2. INSULATARD HM PENFILL (INSULIN HUMAN) SUSPENSION FOR INJECTION [Concomitant]
  3. GLUCOSE [Concomitant]
  4. CALCIUM GLUCONATE [Concomitant]
  5. AMPICILLIN [Concomitant]
  6. OXYGEN (OXYGEN) [Concomitant]
  7. GENTAMICIN [Concomitant]
  8. PLASMA [Concomitant]
  9. MATERNA 1.60 (MINERALS NOS, VITAMINS NOS, DOCUSATE SODIUM) [Concomitant]
  10. LEVOTHYROXINE SODIUM [Concomitant]

REACTIONS (5)
  - DRUG EXPOSURE DURING PREGNANCY [None]
  - HYPOGLYCAEMIA NEONATAL [None]
  - NEONATAL RESPIRATORY FAILURE [None]
  - PREMATURE BABY [None]
  - TREMOR NEONATAL [None]
